FAERS Safety Report 9436988 (Version 1)
Quarter: 2013Q3

REPORT INFORMATION
  Report Type: Spontaneous
  Country: US (occurrence: US)
  Receive Date: 20130802
  Receipt Date: 20130802
  Transmission Date: 20140515
  Serious: No
  Sender: FDA-Public Use
  Company Number: US-PFIZER INC-2013224451

PATIENT
  Age: 63 Year
  Sex: Female
  Weight: 77.1 kg

DRUGS (13)
  1. EFFEXOR XR [Suspect]
     Indication: DEPRESSION
     Dosage: UNK
     Route: 048
  2. EFFEXOR XR [Suspect]
     Dosage: UNK
     Route: 048
  3. EFFEXOR XR [Suspect]
     Dosage: 300 MG (TWO 150MG CAPSULES), UNK
     Route: 048
  4. VENLAFAXINE [Suspect]
     Indication: DEPRESSION
     Dosage: UNK
     Route: 048
  5. VENLAFAXINE [Suspect]
     Dosage: 112.5 MG (THREE 37.5MG TABLETS), UNK
     Route: 048
  6. LOVASTATIN [Concomitant]
     Indication: BLOOD CHOLESTEROL INCREASED
     Dosage: 20 MG, 1X/DAY
  7. AMLODIPINE [Concomitant]
     Dosage: 10 MG, 1X/DAY
  8. DEPLIN [Concomitant]
     Dosage: 15 MG, 1X/DAY
  9. LISINOPRIL [Concomitant]
     Indication: HYPERTENSION
     Dosage: 20 MG, 1X/DAY
  10. CYTOMEL [Concomitant]
     Dosage: 0.05 MG, 1X/DAY
  11. LORAZEPAM [Concomitant]
     Dosage: 1 MG, UNK
  12. TOPAMAX [Concomitant]
     Dosage: 100 MG, 1X/DAY
  13. METHYLPHENIDATE [Concomitant]
     Dosage: 20 MG, AS NEEDED

REACTIONS (4)
  - Dyspnoea exertional [Unknown]
  - Temperature intolerance [Unknown]
  - Feeling hot [Unknown]
  - Drug ineffective [Unknown]
